FAERS Safety Report 6409386-X (Version None)
Quarter: 2009Q4

REPORT INFORMATION
  Report Type: 
  Country: None (occurrence: None)
  Receive Date: 20091019
  Receipt Date: 20091019
  Transmission Date: 20100525
  Serious: Yes (Life-Threatening)
  Sender: FDA-Public Use
  Company Number: None

PATIENT
  Sex: Female
  Weight: 81.8 kg

DRUGS (3)
  1. CITALOPRAM HYDROBROMIDE [Suspect]
     Indication: ANXIETY
     Dosage: 10 MG 1 X A DAY BY MOUTH
     Dates: start: 20081101, end: 20090801
  2. CITALOPRAM HYDROBROMIDE [Suspect]
     Indication: PAIN MANAGEMENT
     Dosage: 10 MG 1 X A DAY BY MOUTH
     Dates: start: 20081101, end: 20090801
  3. CITALOPRAM HYDROBROMIDE [Suspect]

REACTIONS (27)
  - ARRHYTHMIA [None]
  - ARTERIOSCLEROSIS CORONARY ARTERY [None]
  - BLOOD CHOLESTEROL ABNORMAL [None]
  - BLOOD CHOLESTEROL INCREASED [None]
  - BLOOD GLUCOSE INCREASED [None]
  - BLOOD TRIGLYCERIDES ABNORMAL [None]
  - BLOOD TRIGLYCERIDES INCREASED [None]
  - BRUXISM [None]
  - CHEST DISCOMFORT [None]
  - DRUG WITHDRAWAL SYNDROME [None]
  - FEELING ABNORMAL [None]
  - HYPERAESTHESIA [None]
  - HYPERSENSITIVITY [None]
  - IMMUNE SYSTEM DISORDER [None]
  - INFECTION [None]
  - INSOMNIA [None]
  - MULTIPLE ALLERGIES [None]
  - NERVOUSNESS [None]
  - RED BLOOD CELL COUNT DECREASED [None]
  - SKIN BURNING SENSATION [None]
  - SLEEP APNOEA SYNDROME [None]
  - SLEEP DISORDER [None]
  - STOMATITIS [None]
  - TEMPERATURE INTOLERANCE [None]
  - TONGUE BITING [None]
  - TONGUE DISORDER [None]
  - VITAMIN D DECREASED [None]
